FAERS Safety Report 9868672 (Version 1)
Quarter: 2014Q1

REPORT INFORMATION
  Report Type: Spontaneous
  Country: DE (occurrence: DE)
  Receive Date: 20140204
  Receipt Date: 20140204
  Transmission Date: 20141002
  Serious: Yes (Congenital Anomaly)
  Sender: FDA-Public Use
  Company Number: DE-MYLANLABS-2014S1001515

PATIENT
  Sex: 0

DRUGS (2)
  1. VENLAFAXINE [Suspect]
     Dosage: 300 [MG/D ]
     Route: 064
     Dates: start: 20101212, end: 20110208
  2. FEMIBION /07499601/ [Concomitant]
     Route: 064
     Dates: start: 20110124, end: 20110311

REACTIONS (3)
  - Atrioventricular septal defect [Not Recovered/Not Resolved]
  - Hydrops foetalis [Not Recovered/Not Resolved]
  - Exposure during pregnancy [Unknown]
